FAERS Safety Report 23383157 (Version 1)
Quarter: 2024Q1

REPORT INFORMATION
  Report Type: Spontaneous
  Country: US (occurrence: US)
  Receive Date: 20240109
  Receipt Date: 20240109
  Transmission Date: 20240410
  Serious: No
  Sender: FDA-Public Use
  Company Number: US-PFIZER INC-2021039643

PATIENT
  Age: 75 Year
  Sex: Female

DRUGS (6)
  1. EUCRISA [Suspect]
     Active Substance: CRISABOROLE
     Indication: Lichen sclerosus
     Dosage: APPLY TO AFFECTED AREA ONCE DAILY FOR 2 WEEKS
     Route: 061
  2. EUCRISA [Suspect]
     Active Substance: CRISABOROLE
     Dosage: USED THIS TWICE DAILY
  3. EUCRISA [Suspect]
     Active Substance: CRISABOROLE
     Dosage: APPLY TO AFFECTED AREA ONCE DAILY FOR 14 DAYS
  4. EUCRISA [Suspect]
     Active Substance: CRISABOROLE
     Dosage: APPLY TO AFFECTED AREAS FOR 2 WEEKS
  5. EUCRISA [Suspect]
     Active Substance: CRISABOROLE
     Dosage: 2X/DAY (APPLY TO AFFECTED AREA(S) TWICE A DAY FOR 2 WEEKS)
  6. EUCRISA [Suspect]
     Active Substance: CRISABOROLE
     Dosage: APPLY TO AFFECTED AREA 1-2X A DAY

REACTIONS (2)
  - Off label use [Unknown]
  - Pharyngeal disorder [Unknown]
